FAERS Safety Report 7105192-1 (Version None)
Quarter: 2010Q4

REPORT INFORMATION
  Report Type: 
  Country: None (occurrence: None)
  Receive Date: 20101116
  Receipt Date: 20101001
  Transmission Date: 20110411
  Serious: Yes (Hospitalization, Other)
  Sender: FDA-Public Use
  Company Number: US-BAYER-200942579NA

PATIENT
  Age: 24 Year
  Sex: Female
  Weight: 59 kg

DRUGS (7)
  1. YAZ [Suspect]
     Indication: ORAL CONTRACEPTION
     Route: 048
     Dates: start: 20071001, end: 20081206
  2. CEFTIN [Concomitant]
  3. COUMADIN [Concomitant]
  4. TYLENOL [Concomitant]
     Dosage: AS NEEDED
  5. PEPCID [Concomitant]
  6. PREDNISONE [Concomitant]
     Dosage: TOTAL DAILY DOSE: 20 MG
  7. PREDNISONE [Concomitant]
     Dosage: TOTAL DAILY DOSE: 10 MG

REACTIONS (7)
  - CHEST DISCOMFORT [None]
  - DYSPNOEA [None]
  - PALPITATIONS [None]
  - PLEURISY [None]
  - PLEURITIC PAIN [None]
  - PULMONARY EMBOLISM [None]
  - RALES [None]
